FAERS Safety Report 25572378 (Version 2)
Quarter: 2025Q3

REPORT INFORMATION
  Report Type: Spontaneous
  Country: US (occurrence: US)
  Receive Date: 20250717
  Receipt Date: 20250729
  Transmission Date: 20251020
  Serious: No
  Sender: VERTEX
  Company Number: US-VERTEX PHARMACEUTICALS-2025-011342

PATIENT
  Age: 39 Year
  Sex: Female

DRUGS (4)
  1. TRIKAFTA [Suspect]
     Active Substance: ELEXACAFTOR\IVACAFTOR\TEZACAFTOR
     Indication: Cystic fibrosis
     Route: 048
  2. AZELASTINE [Concomitant]
     Active Substance: AZELASTINE
     Indication: Hypersensitivity
     Dosage: 2 PER NOSTRIL TWICE DAILY
     Route: 045
  3. AZELASTINE [Concomitant]
     Active Substance: AZELASTINE
     Dosage: 1 SPRAY
     Route: 045
  4. SALINE [Concomitant]
     Active Substance: SODIUM CHLORIDE
     Indication: Hypersensitivity

REACTIONS (17)
  - Feelings of worthlessness [Unknown]
  - Anxiety [Unknown]
  - Apathy [Unknown]
  - Mental disorder [Not Recovered/Not Resolved]
  - Pain [Not Recovered/Not Resolved]
  - Back disorder [Not Recovered/Not Resolved]
  - Fatigue [Not Recovered/Not Resolved]
  - Asthenia [Not Recovered/Not Resolved]
  - Photopsia [Not Recovered/Not Resolved]
  - Eye pruritus [Not Recovered/Not Resolved]
  - Upper-airway cough syndrome [Not Recovered/Not Resolved]
  - Sneezing [Not Recovered/Not Resolved]
  - Impaired quality of life [Not Recovered/Not Resolved]
  - Intraocular pressure increased [Not Recovered/Not Resolved]
  - Respiratory tract congestion [Not Recovered/Not Resolved]
  - Dizziness [Not Recovered/Not Resolved]
  - Headache [Not Recovered/Not Resolved]
